FAERS Safety Report 22269381 (Version 1)
Quarter: 2023Q2

REPORT INFORMATION
  Report Type: Spontaneous
  Country: US (occurrence: None)
  Receive Date: 20230430
  Receipt Date: 20230430
  Transmission Date: 20230722
  Serious: Yes (Other)
  Sender: FDA-Public Use
  Company Number: None

PATIENT
  Age: 62 Year
  Sex: Female

DRUGS (25)
  1. ENBREL [Suspect]
     Active Substance: ETANERCEPT
     Indication: Rheumatoid arthritis
     Dosage: FREQUENCY : WEEKLY;?
     Route: 058
     Dates: start: 20220406
  2. ALPRAZOLAM [Concomitant]
     Active Substance: ALPRAZOLAM
  3. AMLODIPINE [Concomitant]
     Active Substance: AMLODIPINE BESYLATE
  4. BANOHPEN [Concomitant]
  5. BRILINTA [Concomitant]
  6. CHLORHEX GLU SOL [Concomitant]
  7. DICYCLOMINE [Concomitant]
  8. FOLIC ACID [Concomitant]
     Active Substance: FOLIC ACID
  9. GABAPENTIN CAP 100MG [Concomitant]
  10. GABAPENTIN [Concomitant]
     Active Substance: GABAPENTIN
  11. HYDROCORTIO CRE [Concomitant]
  12. ISOSORB MONO TAB ER [Concomitant]
  13. KLOR-CON PAK [Concomitant]
  14. LEVETIRACETAM [Concomitant]
     Active Substance: LEVETIRACETAM
  15. METHIMAZOLE [Concomitant]
     Active Substance: METHIMAZOLE
  16. METHYLPREDNISOLONE [Concomitant]
     Active Substance: METHYLPREDNISOLONE
  17. METOPROL SUC TAB ER [Concomitant]
  18. OMEPRAZOLE [Concomitant]
     Active Substance: OMEPRAZOLE
  19. OMEPRAZOLE [Concomitant]
     Active Substance: OMEPRAZOLE
  20. ONDANSETRON TAB ODT [Concomitant]
  21. OXYBUTYNIN TAB ER [Concomitant]
  22. PEPCID AC TAB [Concomitant]
  23. PREDNISONE [Concomitant]
     Active Substance: PREDNISONE
  24. VALACYCLOVIR TAB [Concomitant]
  25. VITAMIN D CAP [Concomitant]

REACTIONS (3)
  - Rheumatoid arthritis [None]
  - Loss of personal independence in daily activities [None]
  - Pain [None]

NARRATIVE: CASE EVENT DATE: 20230428
